FAERS Safety Report 4549452-7 (Version None)
Quarter: 2005Q1

REPORT INFORMATION
  Report Type: 
  Country: None (occurrence: None)
  Receive Date: 20050111
  Receipt Date: 20050104
  Transmission Date: 20050727
  Serious: Yes (Hospitalization, Other)
  Sender: FDA-Public Use
  Company Number: US-AMGEN-US105895

PATIENT
  Sex: Female

DRUGS (1)
  1. ENBREL [Suspect]
     Indication: RHEUMATOID ARTHRITIS

REACTIONS (7)
  - BLOOD CHLORIDE DECREASED [None]
  - BLOOD POTASSIUM DECREASED [None]
  - BLOOD SODIUM DECREASED [None]
  - DEMYELINATION [None]
  - DEPRESSED LEVEL OF CONSCIOUSNESS [None]
  - ELECTROLYTE IMBALANCE [None]
  - VIRAL INFECTION [None]
